FAERS Safety Report 24601281 (Version 1)
Quarter: 2024Q4

REPORT INFORMATION
  Report Type: Spontaneous
  Country: US (occurrence: US)
  Receive Date: 20241111
  Receipt Date: 20241111
  Transmission Date: 20250114
  Serious: No
  Sender: BOEHRINGER INGELHEIM
  Company Number: US-Komodo Health-a23aa00000482bpAAA

PATIENT
  Age: 66 Year
  Sex: Female

DRUGS (2)
  1. JARDIANCE [Suspect]
     Active Substance: EMPAGLIFLOZIN
     Indication: Cardiac disorder
  2. JARDIANCE [Suspect]
     Active Substance: EMPAGLIFLOZIN
     Indication: Diabetes mellitus

REACTIONS (8)
  - Cystitis [Recovered/Resolved]
  - Gastrointestinal infection [Recovered/Resolved]
  - Stress urinary incontinence [Unknown]
  - Hypertonic bladder [Unknown]
  - Urinary tract infection [Recovered/Resolved]
  - Device failure [Unknown]
  - Diarrhoea [Recovered/Resolved]
  - Hypertonic bladder [Unknown]

NARRATIVE: CASE EVENT DATE: 20240901
